FAERS Safety Report 8777742 (Version 1)
Quarter: 2012Q4

REPORT INFORMATION
  Report Type: 
  Country: US (occurrence: US)
  Receive Date: 20120910
  Receipt Date: 20120910
  Transmission Date: 20130627
  Serious: No
  Sender: FDA-Public Use
  Company Number: US-ASTRAZENECA-2012SE60936

PATIENT
  Age: 79 Year
  Sex: Male
  Weight: 87.1 kg

DRUGS (5)
  1. NEXIUM [Suspect]
     Indication: GASTROOESOPHAGEAL REFLUX DISEASE
     Route: 048
  2. ALPHAGAN EYEDROPS [Concomitant]
  3. VITAMIN B 12 [Concomitant]
  4. MULTIVITAMIN [Concomitant]
  5. BABY ASPIRIN [Concomitant]

REACTIONS (1)
  - Coeliac disease [Unknown]
